FAERS Safety Report 10687497 (Version 2)
Quarter: 2015Q1

REPORT INFORMATION
  Report Type: Spontaneous
  Country: JP (occurrence: JP)
  Receive Date: 20150102
  Receipt Date: 20150130
  Transmission Date: 20150720
  Serious: Yes (Hospitalization)
  Sender: FDA-Public Use
  Company Number: JP-SA-2014SA178850

PATIENT
  Age: 78 Year
  Sex: Female

DRUGS (3)
  1. MOXIFLOXACIN HYDROCHLORIDE. [Suspect]
     Active Substance: MOXIFLOXACIN HYDROCHLORIDE
     Indication: UPPER RESPIRATORY TRACT INFLAMMATION
     Route: 048
     Dates: start: 2006
  2. INDAPAMIDE. [Suspect]
     Active Substance: INDAPAMIDE
     Indication: HYPERTENSION
     Route: 048
  3. AZELNIDIPINE [Concomitant]
     Active Substance: AZELNIDIPINE
     Indication: HYPERTENSION

REACTIONS (8)
  - Torsade de pointes [Recovered/Resolved]
  - Ventricular extrasystoles [Recovered/Resolved]
  - Long QT syndrome [Recovering/Resolving]
  - Presyncope [Recovered/Resolved]
  - Electrocardiogram QT prolonged [Recovering/Resolving]
  - Syncope [Recovered/Resolved]
  - Hypokalaemia [Recovered/Resolved]
  - Electrocardiogram T wave inversion [Recovered/Resolved]

NARRATIVE: CASE EVENT DATE: 2006
